FAERS Safety Report 7797051-6 (Version None)
Quarter: 2011Q4

REPORT INFORMATION
  Report Type: 
  Country: None (occurrence: None)
  Receive Date: 20111005
  Receipt Date: 20110923
  Transmission Date: 20120403
  Serious: Yes (Hospitalization)
  Sender: FDA-Public Use
  Company Number: US-BAYER-2011-023810

PATIENT
  Age: 23 Year
  Sex: Female

DRUGS (4)
  1. DROSPIRENONE AND ETHINYL ESTRADIOL [Suspect]
     Indication: CONTRACEPTION
     Dosage: UNK UNK, QD
     Route: 048
     Dates: start: 20050101, end: 20100101
  2. WELLBUTRIN [Concomitant]
     Dosage: 100 MG, BID
     Dates: start: 20110609
  3. VITAMIN A [Concomitant]
     Dosage: 1000 IU, BID
     Dates: start: 20100609
  4. NAPROXEN SODIUM W/PSEUDOEPHEDRINE HCL [Concomitant]
     Dosage: 500 MG, BID
     Dates: start: 20100609

REACTIONS (3)
  - CHOLELITHIASIS [None]
  - PAIN [None]
  - INJURY [None]
